FAERS Safety Report 5235040-6 (Version None)
Quarter: 2007Q1

REPORT INFORMATION
  Report Type: 
  Country: None (occurrence: None)
  Receive Date: 20070207
  Receipt Date: 20070126
  Transmission Date: 20070707
  Serious: Yes (Hospitalization)
  Sender: FDA-Public Use
  Company Number: 2007US000240

PATIENT
  Age: 16 Year
  Sex: Female

DRUGS (2)
  1. PROGRAF [Suspect]
     Indication: LUNG TRANSPLANT
  2. METOCLOPRAMIDE (METOCLOPRAMIDE HYDROCHLORIDE) [Suspect]
     Indication: NAUSEA
     Dosage: 5 MG, QD, ORAL
     Route: 048

REACTIONS (18)
  - ASTERIXIS [None]
  - CACHEXIA [None]
  - DIZZINESS [None]
  - DRUG WITHDRAWAL SYNDROME [None]
  - DYSKINESIA [None]
  - DYSTONIA [None]
  - GAZE PALSY [None]
  - HEADACHE [None]
  - LUNG TRANSPLANT REJECTION [None]
  - MALNUTRITION [None]
  - MYOCLONUS [None]
  - NAUSEA [None]
  - NEUROPATHY PERIPHERAL [None]
  - OCULOGYRATION [None]
  - ORAL INTAKE REDUCED [None]
  - VISION BLURRED [None]
  - VISUAL ACUITY REDUCED [None]
  - VOMITING [None]
